FAERS Safety Report 5263294-9 (Version None)
Quarter: 2007Q1

REPORT INFORMATION
  Report Type: 
  Country: None (occurrence: None)
  Receive Date: 20061219
  Receipt Date: 20060908
  Transmission Date: 20070707
  Serious: No
  Sender: FDA-Public Use
  Company Number: 2006US001960

PATIENT
  Age: 63 Year
  Sex: Male

DRUGS (4)
  1. VESICARE [Suspect]
     Indication: MICTURITION DISORDER
  2. COPAXONE [Concomitant]
  3. TYLENOL [Concomitant]
  4. VITAMINS [Concomitant]

REACTIONS (3)
  - ASTHENIA [None]
  - DYSKINESIA [None]
  - FATIGUE [None]
